FAERS Safety Report 12266108 (Version 3)
Quarter: 2016Q2

REPORT INFORMATION
  Report Type: Spontaneous
  Country: DE (occurrence: DE)
  Receive Date: 20160413
  Receipt Date: 20160606
  Transmission Date: 20160815
  Serious: Yes (Hospitalization)
  Sender: FDA-Public Use
  Company Number: DE-AMGEN-DEUSP2016045188

PATIENT
  Sex: Female

DRUGS (3)
  1. MIMPARA [Suspect]
     Active Substance: CINACALCET HYDROCHLORIDE
     Indication: HYPERPARATHYROIDISM PRIMARY
     Dosage: 30 MG, QD
     Route: 048
     Dates: start: 20151119
  2. CANDESARTAN [Concomitant]
     Active Substance: CANDESARTAN
     Dosage: 4 MG, QD
  3. INSULIN [Concomitant]
     Active Substance: INSULIN NOS
     Dosage: UNK, 0-0-18

REACTIONS (3)
  - Blood parathyroid hormone abnormal [Unknown]
  - Off label use [Unknown]
  - Drug ineffective for unapproved indication [Recovering/Resolving]
